FAERS Safety Report 8521925-1 (Version None)
Quarter: 2012Q3

REPORT INFORMATION
  Report Type: 
  Country: None (occurrence: None)
  Receive Date: 20120719
  Receipt Date: 20120530
  Transmission Date: 20120928
  Serious: No
  Sender: FDA-Public Use
  Company Number: US-BRISTOL-MYERS SQUIBB COMPANY-16646614

PATIENT
  Age: 5 Decade
  Sex: Female

DRUGS (1)
  1. YERVOY [Suspect]
     Indication: METASTATIC MALIGNANT MELANOMA
     Dosage: RECEIVED FIRST DOSE.

REACTIONS (4)
  - ASTHENIA [None]
  - NEUROPATHY PERIPHERAL [None]
  - FATIGUE [None]
  - HEADACHE [None]
